FAERS Safety Report 5216763-1 (Version None)
Quarter: 2007Q1

REPORT INFORMATION
  Report Type: 
  Country: None (occurrence: None)
  Receive Date: 20070118
  Receipt Date: 20070103
  Transmission Date: 20070707
  Serious: Yes (Other)
  Sender: FDA-Public Use
  Company Number: 2007RR-05065

PATIENT
  Age: 48 Year
  Sex: Female

DRUGS (8)
  1. AMITRIPTYLINE HCL [Suspect]
     Indication: NEURALGIA
     Dosage: ORAL
     Route: 048
     Dates: start: 20060225
  2. GABAPENTIN [Suspect]
     Indication: NEURALGIA
     Dosage: 2.7 G, ORAL
     Route: 048
     Dates: start: 20060511
  3. CLOTRIMAZOLE [Concomitant]
  4. CODEINE PHOSPHATE (CODEINE PHOSPHATE) [Concomitant]
  5. DICLOFENAC SODIUM [Concomitant]
  6. LANSORPAZOLE (LANSORPAZOLE) [Concomitant]
  7. PARACEMATOL (PARACEMATOL) [Concomitant]
  8. TAMOXIFEN CITRATE [Concomitant]

REACTIONS (5)
  - BALANCE DISORDER [None]
  - DYSKINESIA [None]
  - DYSPEPSIA [None]
  - HYPERTONIA [None]
  - LOSS OF CONTROL OF LEGS [None]
